FAERS Safety Report 6400438-7 (Version None)
Quarter: 2009Q4

REPORT INFORMATION
  Report Type: 
  Country: None (occurrence: None)
  Receive Date: 20091007
  Receipt Date: 20091007
  Transmission Date: 20100525
  Serious: Yes (Hospitalization, Disabling)
  Sender: FDA-Public Use
  Company Number: None

PATIENT
  Age: 98 Year
  Sex: Female
  Weight: 50 kg

DRUGS (8)
  1. PHENYTOIN [Suspect]
     Indication: ANXIETY
     Dosage: 300MG DAILY PO, YEARS
     Route: 048
  2. PHENYTOIN [Suspect]
     Indication: CONVULSION
     Dosage: 300MG DAILY PO, YEARS
     Route: 048
  3. SERTRALINE HCL [Suspect]
     Indication: DEPRESSION
     Dosage: 50MG DAILY
  4. PROTONIX [Concomitant]
  5. XANAX [Concomitant]
  6. DIGOXIN [Concomitant]
  7. METFORMIN HYDROCHLORIDE [Concomitant]
  8. ASPIRIN [Concomitant]

REACTIONS (4)
  - DRUG INTERACTION [None]
  - DRUG TOXICITY [None]
  - FALL [None]
  - PUBIS FRACTURE [None]
